FAERS Safety Report 16034170 (Version 1)
Quarter: 2019Q1

REPORT INFORMATION
  Report Type: Spontaneous
  Country: US (occurrence: US)
  Receive Date: 20190204
  Receipt Date: 20190204
  Transmission Date: 20190418
  Serious: No
  Sender: FDA-Public Use
  Company Number: None

PATIENT
  Age: 38 Year
  Sex: Female

DRUGS (1)
  1. MYOBLOC [Suspect]
     Active Substance: RIMABOTULINUMTOXINB
     Dosage: ?          OTHER
     Route: 030
     Dates: start: 20181114

REACTIONS (4)
  - Condition aggravated [None]
  - Headache [None]
  - Head discomfort [None]
  - Paralysis [None]

NARRATIVE: CASE EVENT DATE: 20190204
